FAERS Safety Report 8536433-1 (Version None)
Quarter: 2012Q3

REPORT INFORMATION
  Report Type: 
  Country: None (occurrence: None)
  Receive Date: 20120725
  Receipt Date: 20120723
  Transmission Date: 20120928
  Serious: Yes (Hospitalization)
  Sender: FDA-Public Use
  Company Number: US-ROCHE-1090134

PATIENT
  Sex: Male

DRUGS (11)
  1. FLUCONAZOLE [Concomitant]
     Route: 042
  2. NYSTATIN [Concomitant]
     Dosage: DOSE: 500 MM UNIT
     Route: 061
  3. MIRALAX [Concomitant]
     Route: 048
  4. PROCRIT [Concomitant]
     Dosage: DOSE: 3000 UNITS
  5. SODIUM BICARBONATE [Concomitant]
     Route: 048
  6. PEPCID [Concomitant]
     Route: 048
  7. POLY VI SOL WITH IRON [Concomitant]
  8. CALCITRIOL [Concomitant]
  9. FERROUS SULFATE TAB [Concomitant]
     Route: 048
  10. SOMATROPIN [Suspect]
     Indication: GROWTH HORMONE DEFICIENCY
     Route: 058
  11. RENVELA [Concomitant]
     Route: 048

REACTIONS (3)
  - INFECTION [None]
  - PYREXIA [None]
  - FUNGAEMIA [None]
